FAERS Safety Report 25231598 (Version 1)
Quarter: 2025Q2

REPORT INFORMATION
  Report Type: Spontaneous
  Country: US (occurrence: None)
  Receive Date: 20250423
  Receipt Date: 20250423
  Transmission Date: 20250717
  Serious: Yes (Disabling, Other)
  Sender: FDA-CTU
  Company Number: None

PATIENT
  Age: 66 Year
  Sex: Female
  Weight: 56.25 kg

DRUGS (13)
  1. BOTOX COSMETIC [Suspect]
     Active Substance: ONABOTULINUMTOXINA
     Indication: Skin wrinkling
     Route: 030
     Dates: start: 20250416, end: 20250416
  2. DILTIAZEM [Concomitant]
     Active Substance: DILTIAZEM
  3. SYNTHROID [Concomitant]
     Active Substance: LEVOTHYROXINE SODIUM
  4. MAGNESIUM GLYCINATE [Concomitant]
     Active Substance: MAGNESIUM GLYCINATE
  5. VITAMIN D3 [Concomitant]
     Active Substance: CHOLECALCIFEROL
  6. VITAMIN B COMPLEX [Concomitant]
     Active Substance: CYANOCOBALAMIN\DEXPANTHENOL\NIACINAMIDE\PYRIDOXINE HYDROCHLORIDE\RIBOFLAVIN 5^-PHOSPHATE SODIUM\THIA
  7. BIOGAIA PROTECTIS DROPS FOR INFANTS [Concomitant]
  8. THEANINE [Concomitant]
     Active Substance: THEANINE
  9. VITAMIN C [Concomitant]
     Active Substance: ASCORBIC ACID
  10. FAMITODINE [Concomitant]
  11. QUERCETIN [Concomitant]
     Active Substance: QUERCETIN
  12. UBIQUINOL [Concomitant]
     Active Substance: UBIQUINOL
  13. WATER WITH ELECTOLYTES (SMART WATER OR ESSENTIA) [Concomitant]

REACTIONS (11)
  - Palpitations [None]
  - Ventricular extrasystoles [None]
  - Muscle twitching [None]
  - Paraesthesia [None]
  - Body temperature abnormal [None]
  - Hot flush [None]
  - Muscular weakness [None]
  - Anxiety [None]
  - Stress [None]
  - Impaired quality of life [None]
  - Loss of personal independence in daily activities [None]

NARRATIVE: CASE EVENT DATE: 20250417
